FAERS Safety Report 4279923-2 (Version None)
Quarter: 2004Q1

REPORT INFORMATION
  Report Type: 
  Country: None (occurrence: None)
  Receive Date: 20040126
  Receipt Date: 20040109
  Transmission Date: 20041129
  Serious: Yes (Death)
  Sender: FDA-Public Use
  Company Number: 2003AP02923

PATIENT
  Age: 59 Year
  Sex: Male

DRUGS (15)
  1. IRESSA [Suspect]
     Indication: LUNG ADENOCARCINOMA
     Dosage: 250 MG DAILY; PO
     Route: 048
     Dates: start: 20030818
  2. HUSTEN [Concomitant]
  3. SELBEX [Concomitant]
  4. NOVAMIN [Concomitant]
  5. MS CONTIN [Concomitant]
  6. MAXIPIME [Concomitant]
  7. VOLTAREN [Concomitant]
  8. ESTAZOLAM [Concomitant]
  9. KAMAG G [Concomitant]
  10. AREDIA [Concomitant]
  11. CARBOPLATIN [Concomitant]
  12. TAXOL [Concomitant]
  13. VINORELBINE [Concomitant]
  14. MEDICON [Concomitant]
  15. APRICOT KERNEL WATER [Concomitant]

REACTIONS (8)
  - ACUTE RESPIRATORY FAILURE [None]
  - CARDIO-RESPIRATORY ARREST [None]
  - CHOKING [None]
  - DISORIENTATION [None]
  - HYPERCALCAEMIA [None]
  - INFARCTION [None]
  - LUNG DISORDER [None]
  - RALES [None]
